FAERS Safety Report 18648854 (Version 1)
Quarter: 2020Q4

REPORT INFORMATION
  Report Type: Spontaneous
  Country: US (occurrence: US)
  Receive Date: 20201222
  Receipt Date: 20201222
  Transmission Date: 20210114
  Serious: Yes (Other)
  Sender: FDA-Public Use
  Company Number: US-PFIZER INC-2020471332

PATIENT
  Age: 36 Year
  Sex: Female
  Weight: 86.18 kg

DRUGS (1)
  1. DIFLUCAN [Suspect]
     Active Substance: FLUCONAZOLE
     Indication: FUNGAL INFECTION
     Dosage: UNK

REACTIONS (5)
  - Nasopharyngitis [Unknown]
  - Product use issue [Unknown]
  - Disease recurrence [Not Recovered/Not Resolved]
  - Fungal infection [Not Recovered/Not Resolved]
  - Staphylococcal infection [Unknown]
